FAERS Safety Report 11109858 (Version 1)
Quarter: 2015Q2

REPORT INFORMATION
  Report Type: Spontaneous
  Country: US (occurrence: US)
  Receive Date: 20150513
  Receipt Date: 20150513
  Transmission Date: 20150821
  Serious: No
  Sender: FDA-Public Use
  Company Number: US-PFIZER INC-2015150604

PATIENT

DRUGS (1)
  1. LIPITOR [Suspect]
     Active Substance: ATORVASTATIN CALCIUM
     Dosage: UNK

REACTIONS (4)
  - Dizziness [Recovering/Resolving]
  - Mental disorder [Recovering/Resolving]
  - Myalgia [Recovering/Resolving]
  - Coordination abnormal [Recovering/Resolving]
